FAERS Safety Report 7135957 (Version 5)
Quarter: 2014Q2

REPORT INFORMATION
  Report Type: Spontaneous
  Country: US (occurrence: US)
  Receive Date: 20091001
  Receipt Date: 20140509
  Transmission Date: 20141212
  Serious: Yes (Other)
  Sender: FDA-Public Use
  Company Number: US-ELI_LILLY_AND_COMPANY-US200909006487

PATIENT
  Age: 78 Year
  Sex: Female

DRUGS (3)
  1. HUMALOG LISPRO [Suspect]
     Indication: TYPE 2 DIABETES MELLITUS
     Dosage: UNK, 4/D
     Route: 065
     Dates: start: 1995
  2. HUMALOG LISPRO [Suspect]
     Dosage: UNK, 4/D
     Route: 065
  3. LEVEMIR [Concomitant]
     Dosage: 20 U, EACH EVENING

REACTIONS (1)
  - Rectal cancer [Recovered/Resolved]
